FAERS Safety Report 11381311 (Version 2)
Quarter: 2015Q4

REPORT INFORMATION
  Report Type: Report from Study
  Country: US (occurrence: US)
  Receive Date: 20150814
  Receipt Date: 20151127
  Transmission Date: 20160304
  Serious: No
  Sender: FDA-Public Use
  Company Number: PHEH2015US015309

PATIENT
  Age: 73 Year
  Sex: Female

DRUGS (1)
  1. SIGNIFOR [Suspect]
     Active Substance: PASIREOTIDE
     Indication: CUSHING^S SYNDROME
     Dosage: 0.6 MG, BID
     Route: 058
     Dates: start: 20150806, end: 20150813

REACTIONS (1)
  - Diarrhoea [Not Recovered/Not Resolved]

NARRATIVE: CASE EVENT DATE: 20150930
